FAERS Safety Report 5438140-0 (Version None)
Quarter: 2007Q3

REPORT INFORMATION
  Report Type: 
  Country: None (occurrence: None)
  Receive Date: 20070831
  Receipt Date: 20070702
  Transmission Date: 20080115
  Serious: No
  Sender: FDA-Public Use
  Company Number: A0660984A

PATIENT
  Age: 38 Year
  Sex: Female
  Weight: 94 kg

DRUGS (1)
  1. ALLI [Suspect]
     Dates: start: 20070615, end: 20070618

REACTIONS (3)
  - DIARRHOEA [None]
  - HAEMATOCHEZIA [None]
  - PHARYNGOLARYNGEAL PAIN [None]
